FAERS Safety Report 6505628-0 (Version None)
Quarter: 2009Q4

REPORT INFORMATION
  Report Type: 
  Country: None (occurrence: None)
  Receive Date: 20091218
  Receipt Date: 20091209
  Transmission Date: 20100525
  Serious: Yes (Hospitalization, Disabling)
  Sender: FDA-Public Use
  Company Number: GXKR2009GB13307

PATIENT
  Age: 47 Year
  Sex: Male

DRUGS (1)
  1. SIMVASTATIN [Suspect]
     Indication: HYPERCHOLESTEROLAEMIA
     Dosage: 40 MG, QD
     Route: 065
     Dates: start: 20080222

REACTIONS (5)
  - CAST APPLICATION [None]
  - CONTUSION [None]
  - PAIN IN EXTREMITY [None]
  - TENDON OPERATION [None]
  - TENDON RUPTURE [None]
